FAERS Safety Report 6488266-8 (Version None)
Quarter: 2009Q4

REPORT INFORMATION
  Report Type: 
  Country: None (occurrence: None)
  Receive Date: 20091210
  Receipt Date: 20091202
  Transmission Date: 20100525
  Serious: Yes (Other)
  Sender: FDA-Public Use
  Company Number: US-ABBOTT-09P-163-0600756-00

PATIENT
  Sex: Female

DRUGS (5)
  1. HUMIRA [Suspect]
     Indication: RHEUMATOID ARTHRITIS
     Route: 058
     Dates: start: 20080901, end: 20081217
  2. HUMIRA [Suspect]
     Route: 058
     Dates: start: 20090901
  3. FOLGUARD [Concomitant]
     Indication: DRUG USE FOR UNKNOWN INDICATION
  4. MEDROL [Concomitant]
     Indication: RHEUMATOID ARTHRITIS
     Dates: end: 20081201
  5. VITAMIN TAB [Concomitant]
     Indication: PREGNANCY
     Dates: start: 20081201

REACTIONS (1)
  - AMNIOTIC FLUID VOLUME DECREASED [None]
